FAERS Safety Report 9991404 (Version 1)
Quarter: 2014Q1

REPORT INFORMATION
  Report Type: Spontaneous
  Country: US (occurrence: None)
  Receive Date: 20140123
  Receipt Date: 20140123
  Transmission Date: 20141002
  Serious: Yes (Hospitalization)
  Sender: FDA-Public Use
  Company Number: UTC-040750

PATIENT
  Age: 46 Year
  Sex: Female
  Weight: 64.09 kg

DRUGS (2)
  1. REMODULIN [Suspect]
     Indication: PULMONARY ARTERIAL HYPERTENSION
     Dosage: 100.8 UG/KG (0.07 UG/KG,L IN 1 MIN),INTRAVENOUS DRIP
     Route: 041
     Dates: start: 20130227
  2. ADCIRCA (TADALAFIL)(UNKNOWN) [Concomitant]

REACTIONS (1)
  - Device related infection [None]
